FAERS Safety Report 6252660-0 (Version None)
Quarter: 2009Q3

REPORT INFORMATION
  Report Type: 
  Country: None (occurrence: None)
  Receive Date: 20090701
  Receipt Date: 20090618
  Transmission Date: 20100115
  Serious: Yes (Other)
  Sender: FDA-Public Use
  Company Number: PHHY2009ZA24384

PATIENT
  Sex: Female
  Weight: 89 kg

DRUGS (3)
  1. VAA489A VAL_AML+TAB [Suspect]
     Indication: HYPERTENSION
     Dosage: 1 TABLET (160/5 MG) DAILY
     Route: 048
     Dates: start: 20090608, end: 20090618
  2. EVOREL [Concomitant]
     Indication: MENOPAUSE
     Dosage: 1 TRANSDERMAL PATCH PER WEEK
     Route: 062
     Dates: start: 20000101
  3. ASPIRIN [Concomitant]
     Indication: CEREBROVASCULAR ACCIDENT PROPHYLAXIS
     Dosage: 1 PER DAY
     Dates: start: 20030101

REACTIONS (6)
  - FATIGUE [None]
  - FLUSHING [None]
  - HEADACHE [None]
  - INSOMNIA [None]
  - NAUSEA [None]
  - RESTLESSNESS [None]
